FAERS Safety Report 21610252 (Version 1)
Quarter: 2022Q4

REPORT INFORMATION
  Report Type: Spontaneous
  Country: US (occurrence: US)
  Receive Date: 20221117
  Receipt Date: 20221117
  Transmission Date: 20230112
  Serious: No
  Sender: FDA-Public Use
  Company Number: US-009507513-2211USA004600

PATIENT
  Age: 76 Year
  Sex: Male

DRUGS (1)
  1. VERQUVO [Suspect]
     Active Substance: VERICIGUAT
     Indication: Cardiovascular event prophylaxis
     Dosage: 2.5 MILLIGRAM FREQUENCY: UNKNOWN
     Route: 048
     Dates: start: 202211

REACTIONS (2)
  - Blood potassium increased [Not Recovered/Not Resolved]
  - Glomerular filtration rate abnormal [Not Recovered/Not Resolved]

NARRATIVE: CASE EVENT DATE: 20221111
